FAERS Safety Report 12981759 (Version 1)
Quarter: 2016Q4

REPORT INFORMATION
  Report Type: Report from Study
  Country: DE (occurrence: DE)
  Receive Date: 20161129
  Receipt Date: 20161129
  Transmission Date: 20170207
  Serious: Yes (Hospitalization, Other)
  Sender: FDA-Public Use
  Company Number: DE-BIOGEN-2015BI034054

PATIENT
  Age: 67 Year
  Sex: Female
  Weight: 40 kg

DRUGS (1)
  1. TECFIDERA [Suspect]
     Active Substance: DIMETHYL FUMARATE
     Indication: MULTIPLE SCLEROSIS
     Route: 048
     Dates: start: 20140829

REACTIONS (9)
  - Abasia [Unknown]
  - Organ failure [Recovered/Resolved with Sequelae]
  - Sepsis [Unknown]
  - Postoperative wound infection [Not Recovered/Not Resolved]
  - Muscle atrophy [Unknown]
  - Gallbladder perforation [Not Recovered/Not Resolved]
  - Suture rupture [Not Recovered/Not Resolved]
  - Gastric perforation [Recovered/Resolved with Sequelae]
  - Gastrointestinal disorder [Recovered/Resolved with Sequelae]

NARRATIVE: CASE EVENT DATE: 20141120
